FAERS Safety Report 21279057 (Version 1)
Quarter: 2022Q3

REPORT INFORMATION
  Report Type: Spontaneous
  Country: CA (occurrence: CA)
  Receive Date: 20220901
  Receipt Date: 20220901
  Transmission Date: 20221027
  Serious: Yes (Death, Hospitalization)
  Sender: FDA-Public Use
  Company Number: CA-SAMSUNG BIOEPIS-SB-2022-21787

PATIENT
  Age: 63 Year
  Sex: Female
  Weight: 96 kg

DRUGS (2)
  1. INFLIXIMAB [Suspect]
     Active Substance: INFLIXIMAB
     Indication: Crohn^s disease
     Route: 042
  2. SODIUM CHLORIDE [Concomitant]
     Active Substance: SODIUM CHLORIDE
     Indication: Product used for unknown indication
     Dosage: UNKNOWN
     Route: 065

REACTIONS (11)
  - Death [Fatal]
  - Aphthous ulcer [Fatal]
  - Arthralgia [Fatal]
  - Condition aggravated [Fatal]
  - Dehydration [Fatal]
  - Erythema nodosum [Fatal]
  - Oedema peripheral [Fatal]
  - Poor venous access [Fatal]
  - Drug ineffective [Fatal]
  - Intentional product use issue [Fatal]
  - Off label use [Fatal]
